FAERS Safety Report 7735324-3 (Version None)
Quarter: 2011Q3

REPORT INFORMATION
  Report Type: 
  Country: None (occurrence: None)
  Receive Date: 20110907
  Receipt Date: 20110907
  Transmission Date: 20111222
  Serious: Yes (Hospitalization, Other)
  Sender: FDA-Public Use
  Company Number: BE-ABBOTT-11P-013-0734353-00

PATIENT
  Sex: Female

DRUGS (3)
  1. ROFENID [Concomitant]
     Indication: PRODUCT USED FOR UNKNOWN INDICATION
  2. HUMIRA [Suspect]
     Indication: ANKYLOSING SPONDYLITIS
     Route: 058
     Dates: start: 20071025, end: 20110610
  3. BISOPROLOL FUMARATE [Concomitant]
     Indication: PRODUCT USED FOR UNKNOWN INDICATION

REACTIONS (7)
  - NECK PAIN [None]
  - UVEITIS [None]
  - PERIARTHRITIS [None]
  - TENDON DISORDER [None]
  - HAEMOPTYSIS [None]
  - SMALL CELL LUNG CANCER STAGE UNSPECIFIED [None]
  - CHEST PAIN [None]
